FAERS Safety Report 8122267-9 (Version None)
Quarter: 2012Q1

REPORT INFORMATION
  Report Type: 
  Country: None (occurrence: None)
  Receive Date: 20120208
  Receipt Date: 20120127
  Transmission Date: 20120608
  Serious: Yes (Hospitalization)
  Sender: FDA-Public Use
  Company Number: US-ELI_LILLY_AND_COMPANY-US201112002903

PATIENT
  Sex: Female

DRUGS (6)
  1. FORTEO [Suspect]
     Indication: BONE DISORDER
     Dosage: 20 UG, QD
     Dates: start: 20110101
  2. FORTEO [Suspect]
     Dosage: 20 UG, QD
     Dates: start: 20120125
  3. CALCIUM [Concomitant]
  4. RESTORIL [Concomitant]
  5. CELEBREX [Concomitant]
  6. XANAX [Concomitant]

REACTIONS (3)
  - ADVERSE EVENT [None]
  - INTENTIONAL DRUG MISUSE [None]
  - SURGERY [None]
